FAERS Safety Report 19882203 (Version 2)
Quarter: 2021Q3

REPORT INFORMATION
  Report Type: Report from Study
  Country: CA (occurrence: CA)
  Receive Date: 20210925
  Receipt Date: 20210930
  Transmission Date: 20211014
  Serious: Yes (Death)
  Sender: FDA-Public Use
  Company Number: NVSC2020CA199845

PATIENT
  Sex: Male

DRUGS (11)
  1. REVOLADE [Suspect]
     Active Substance: ELTROMBOPAG OLAMINE
     Dosage: 100 MG
     Route: 048
     Dates: start: 20200707
  2. REVOLADE [Suspect]
     Active Substance: ELTROMBOPAG OLAMINE
     Dosage: 75 MG, QD
     Route: 065
     Dates: start: 20200820
  3. REVOLADE [Suspect]
     Active Substance: ELTROMBOPAG OLAMINE
     Dosage: 50 MG, QD (STRENGTH: 50 MG)
     Route: 048
     Dates: start: 20200823
  4. REVOLADE [Suspect]
     Active Substance: ELTROMBOPAG OLAMINE
     Dosage: 100 MG
     Route: 048
     Dates: end: 202106
  5. REVOLADE [Suspect]
     Active Substance: ELTROMBOPAG OLAMINE
     Indication: APLASTIC ANAEMIA
     Dosage: 100 MG
     Route: 048
     Dates: start: 202006
  6. REVOLADE [Suspect]
     Active Substance: ELTROMBOPAG OLAMINE
     Dosage: 100 MG (100 MG OF) (STRENGTH: 75 MG)
     Route: 048
     Dates: end: 20210706
  7. POSACONAZOLE [Concomitant]
     Active Substance: POSACONAZOLE
     Indication: PRODUCT USED FOR UNKNOWN INDICATION
     Dosage: UNK (ANTIBACTERIAL)
     Route: 065
  8. PENICILLIN [Concomitant]
     Active Substance: PENICILLIN
     Indication: PRODUCT USED FOR UNKNOWN INDICATION
     Dosage: UNK (10 DAYS COURSE)
     Route: 065
  9. REVOLADE [Suspect]
     Active Substance: ELTROMBOPAG OLAMINE
     Dosage: 75 MG
     Route: 048
  10. REVOLADE [Suspect]
     Active Substance: ELTROMBOPAG OLAMINE
     Dosage: 100 MG
     Route: 065
     Dates: start: 2020, end: 2021
  11. TACROLIMUS. [Concomitant]
     Active Substance: TACROLIMUS
     Indication: PRODUCT USED FOR UNKNOWN INDICATION
     Dosage: UNK (ANTIBACTERIAL)
     Route: 065

REACTIONS (7)
  - Death [Fatal]
  - Neutrophil count decreased [Unknown]
  - Infection [Unknown]
  - Drug ineffective [Unknown]
  - Hepatic enzyme abnormal [Not Recovered/Not Resolved]
  - Pyrexia [Unknown]
  - Platelet count decreased [Recovered/Resolved]
